FAERS Safety Report 25377097 (Version 1)
Quarter: 2025Q2

REPORT INFORMATION
  Report Type: Spontaneous
  Country: FR (occurrence: FR)
  Receive Date: 20250530
  Receipt Date: 20250530
  Transmission Date: 20250717
  Serious: Yes (Death)
  Sender: RANBAXY
  Company Number: FR-AFSSAPS-RS2025000192

PATIENT
  Age: 89 Year
  Sex: Male
  Weight: 71 kg

DRUGS (7)
  1. RISPERIDONE [Interacting]
     Active Substance: RISPERIDONE
     Indication: Agitation
     Route: 048
     Dates: start: 20250209, end: 20250209
  2. BISOPROLOL [Interacting]
     Active Substance: BISOPROLOL
     Indication: Atrial fibrillation
     Dosage: 5 MILLIGRAM, DAILY
     Route: 048
     Dates: start: 20241001
  3. MIANSERIN HYDROCHLORIDE [Interacting]
     Active Substance: MIANSERIN HYDROCHLORIDE
     Indication: Aggression
     Dosage: 30 MILLIGRAM, DAILY
     Route: 048
     Dates: start: 20250208
  4. FENTANYL [Interacting]
     Active Substance: FENTANYL
     Indication: Pain
     Dosage: 50 MCG, DAILY INTRODUCTION ON 27/01 AT 25 ?G/DAY, DOSAGE INCREASE ON 08/02
     Route: 062
     Dates: start: 20250208
  5. ALPRAZOLAM [Interacting]
     Active Substance: ALPRAZOLAM
     Indication: Product used for unknown indication
     Dosage: 0.13 MILLIGRAM, DAILY
     Route: 048
  6. ELIQUIS [Interacting]
     Active Substance: APIXABAN
     Indication: Atrial fibrillation
     Dosage: 5 MILLIGRAM, DAILY
     Route: 048
     Dates: start: 20241001
  7. PREDNISONE [Interacting]
     Active Substance: PREDNISONE
     Indication: Pemphigoid
     Dosage: 14 MILLIGRAM, DAILY
     Route: 048
     Dates: start: 20241101

REACTIONS (2)
  - Fall [Fatal]
  - Haematoma [Fatal]

NARRATIVE: CASE EVENT DATE: 20250210
